FAERS Safety Report 6979352-4 (Version None)
Quarter: 2010Q3

REPORT INFORMATION
  Report Type: 
  Country: None (occurrence: None)
  Receive Date: 20100824
  Receipt Date: 20100720
  Transmission Date: 20110219
  Serious: No
  Sender: FDA-Public Use
  Company Number: 310572

PATIENT
  Age: 51 Year
  Sex: Female

DRUGS (1)
  1. VICTOZA INJECTION (LIRAGLUTIDE) SOLUTION FOR INJECTION, 6MG/ML [Suspect]
     Indication: TYPE 2 DIABETES MELLITUS
     Dosage: SUBCUTANEOUS
     Route: 058
     Dates: start: 20100614

REACTIONS (2)
  - FATIGUE [None]
  - NAUSEA [None]
